FAERS Safety Report 10702975 (Version 1)
Quarter: 2015Q1

REPORT INFORMATION
  Report Type: Report from Study
  Country: US (occurrence: US)
  Receive Date: 20150110
  Receipt Date: 20150110
  Transmission Date: 20150721
  Serious: Yes (Hospitalization)
  Sender: FDA-Public Use
  Company Number: US-ABBVIE-15K-163-1330654-00

PATIENT
  Age: 70 Year
  Sex: Male

DRUGS (1)
  1. HUMIRA [Suspect]
     Active Substance: ADALIMUMAB
     Indication: PSORIATIC ARTHROPATHY
     Route: 058
     Dates: start: 20140316, end: 20141226

REACTIONS (3)
  - Malaise [Unknown]
  - Cellulitis [Unknown]
  - Joint effusion [Unknown]

NARRATIVE: CASE EVENT DATE: 201412
